FAERS Safety Report 7894436-4 (Version None)
Quarter: 2011Q4

REPORT INFORMATION
  Report Type: 
  Country: None (occurrence: None)
  Receive Date: 20111105
  Receipt Date: 20111026
  Transmission Date: 20120403
  Serious: Yes (Other)
  Sender: FDA-Public Use
  Company Number: CN-ASTRAZENECA-2011SE64552

PATIENT

DRUGS (2)
  1. FLUTICASONE PROPIONATE [Concomitant]
  2. PULMICORT [Suspect]
     Route: 055

REACTIONS (1)
  - ASTHMA [None]
